FAERS Safety Report 12237999 (Version 1)
Quarter: 2016Q2

REPORT INFORMATION
  Report Type: Spontaneous
  Country: US (occurrence: None)
  Receive Date: 20160404
  Receipt Date: 20160404
  Transmission Date: 20160815
  Serious: Yes (Hospitalization, Other)
  Sender: FDA-Public Use
  Company Number: None

PATIENT
  Age: 46 Year
  Sex: Female
  Weight: 63.5 kg

DRUGS (1)
  1. CIPROFLOXACIN 500MG, 500 MG [Suspect]
     Active Substance: CIPROFLOXACIN
     Indication: ABDOMINAL PAIN
     Dosage: 1 TABLET(S) TWICE A DAY TAKEN BY MOUTH
     Route: 048
     Dates: start: 20140910, end: 20140923

REACTIONS (7)
  - Clostridium difficile infection [None]
  - Anxiety [None]
  - Malaise [None]
  - Depression [None]
  - Suicidal ideation [None]
  - Abdominal pain [None]
  - Hypoaesthesia [None]

NARRATIVE: CASE EVENT DATE: 20140910
